FAERS Safety Report 19846490 (Version 1)
Quarter: 2021Q3

REPORT INFORMATION
  Report Type: Spontaneous
  Country: US (occurrence: US)
  Receive Date: 20210917
  Receipt Date: 20210917
  Transmission Date: 20211014
  Serious: Yes (Other)
  Sender: FDA-Public Use
  Company Number: None

PATIENT
  Age: 40 Year
  Sex: Female

DRUGS (1)
  1. REGEN?COV [Suspect]
     Active Substance: CASIRIVIMAB\IMDEVIMAB
     Indication: COVID-19 TREATMENT
     Dates: start: 20210917

REACTIONS (4)
  - Heart rate decreased [None]
  - Hyperhidrosis [None]
  - Blood pressure decreased [None]
  - Syncope [None]

NARRATIVE: CASE EVENT DATE: 20210917
